FAERS Safety Report 14177028 (Version 1)
Quarter: 2017Q4

REPORT INFORMATION
  Report Type: Spontaneous
  Country: CH (occurrence: CH)
  Receive Date: 20171110
  Receipt Date: 20171110
  Transmission Date: 20180321
  Serious: Yes (Death, Hospitalization, Other)
  Sender: FDA-Public Use
  Company Number: CH-ROCHE-2017829

PATIENT
  Age: 47 Year
  Sex: Female

DRUGS (13)
  1. ACTEMRA [Suspect]
     Active Substance: TOCILIZUMAB
     Indication: CYTOKINE RELEASE SYNDROME
     Dosage: DOSAGE IS UNCERTAIN.
     Route: 041
  2. AZITHROMYCIN ANHYDROUS. [Concomitant]
     Active Substance: AZITHROMYCIN ANHYDROUS
  3. PIPERACILLIN TAZOBACTAM KABI [Concomitant]
     Active Substance: PIPERACILLIN SODIUM\TAZOBACTAM SODIUM
  4. SULFAMETHOXAZOLE/TRIMETHOPRIM [Concomitant]
     Active Substance: SULFAMETHOXAZOLE\TRIMETHOPRIM
     Indication: PROPHYLAXIS
     Route: 065
  5. TISAGENLECLEUCEL. [Suspect]
     Active Substance: TISAGENLECLEUCEL
     Indication: DIFFUSE LARGE B-CELL LYMPHOMA RECURRENT
     Dosage: DOSAGE IS UNCERTAIN.
     Route: 041
  6. FILGRASTIM [Concomitant]
     Active Substance: FILGRASTIM
     Route: 065
  7. FAMCICLOVIR. [Concomitant]
     Active Substance: FAMCICLOVIR
  8. RASBURICASE [Concomitant]
     Active Substance: RASBURICASE
     Indication: PROPHYLAXIS
  9. VANCOMYCIN [Concomitant]
     Active Substance: VANCOMYCIN
  10. PREGABALIN. [Concomitant]
     Active Substance: PREGABALIN
  11. FLUDARABINE [Concomitant]
     Active Substance: FLUDARABINE PHOSPHATE
  12. CEFTRIAXONE. [Concomitant]
     Active Substance: CEFTRIAXONE
     Route: 065
  13. CYCLOPHOSPHAMIDE. [Concomitant]
     Active Substance: CYCLOPHOSPHAMIDE

REACTIONS (11)
  - Liver function test increased [Recovered/Resolved]
  - Disseminated intravascular coagulation [Recovered/Resolved]
  - Staphylococcus test positive [Not Recovered/Not Resolved]
  - Neutropenic colitis [Not Recovered/Not Resolved]
  - Upper gastrointestinal haemorrhage [Recovered/Resolved]
  - Neutrophil count decreased [Not Recovered/Not Resolved]
  - Diffuse large B-cell lymphoma [Fatal]
  - Myopathy [Not Recovered/Not Resolved]
  - Sepsis [Recovered/Resolved]
  - Anaemia [Recovered/Resolved]
  - Acute kidney injury [Recovered/Resolved]

NARRATIVE: CASE EVENT DATE: 20161116
